FAERS Safety Report 25120766 (Version 1)
Quarter: 2025Q1

REPORT INFORMATION
  Report Type: Report from Study
  Country: US (occurrence: US)
  Receive Date: 20250325
  Receipt Date: 20250325
  Transmission Date: 20250409
  Serious: Yes (Other)
  Sender: ABBVIE
  Company Number: US-ABBVIE-6190877

PATIENT
  Age: 50 Year
  Sex: Male

DRUGS (1)
  1. HUMIRA [Suspect]
     Active Substance: ADALIMUMAB
     Indication: Product used for unknown indication
     Dosage: FORM STRENGTH: 40 MG
     Route: 058
     Dates: start: 20110127, end: 202312

REACTIONS (10)
  - Dysplasia [Not Recovered/Not Resolved]
  - Back pain [Unknown]
  - Hiatus hernia [Not Recovered/Not Resolved]
  - Full blood count decreased [Not Recovered/Not Resolved]
  - Diarrhoea [Unknown]
  - Pulmonary sarcoidosis [Not Recovered/Not Resolved]
  - Pneumonia fungal [Recovered/Resolved]
  - Pneumonia bacterial [Recovered/Resolved]
  - Gastrooesophageal reflux disease [Unknown]
  - Urticaria [Recovered/Resolved]

NARRATIVE: CASE EVENT DATE: 20200101
